FAERS Safety Report 6826108-9 (Version None)
Quarter: 2010Q3

REPORT INFORMATION
  Report Type: 
  Country: None (occurrence: None)
  Receive Date: 20100708
  Receipt Date: 20100708
  Transmission Date: 20110219
  Serious: No
  Sender: FDA-Public Use
  Company Number: None

PATIENT
  Age: 65 Year
  Sex: Female

DRUGS (1)
  1. CLIMARA [Suspect]
     Dosage: APPLY 1 PATCH ONCE WEEKLY
     Dates: start: 20100429

REACTIONS (3)
  - BLISTER [None]
  - DRY SKIN [None]
  - HYPERSENSITIVITY [None]
